FAERS Safety Report 9778844 (Version 2)
Quarter: 2014Q2

REPORT INFORMATION
  Report Type: Spontaneous
  Country: CO (occurrence: CO)
  Receive Date: 20131223
  Receipt Date: 20140520
  Transmission Date: 20141212
  Serious: Yes (Hospitalization, Other)
  Sender: FDA-Public Use
  Company Number: CO-BAXTER-2013BAX049448

PATIENT
  Age: 6 Year
  Sex: Male

DRUGS (3)
  1. KIOVIG [Suspect]
     Indication: ENCEPHALITIS BRAIN STEM
     Dosage: 2 GRAMS/KG
     Route: 042
  2. KIOVIG [Suspect]
     Indication: OFF LABEL USE
  3. CORTICOSTEROIDS [Concomitant]
     Indication: ENCEPHALITIS BRAIN STEM
     Route: 065

REACTIONS (1)
  - CSF oligoclonal band [Recovering/Resolving]
